FAERS Safety Report 9557360 (Version 1)
Quarter: 2013Q3

REPORT INFORMATION
  Report Type: Spontaneous
  Country: US (occurrence: None)
  Receive Date: 20130724
  Receipt Date: 20130724
  Transmission Date: 20140515
  Serious: Yes (Other)
  Sender: FDA-Public Use
  Company Number: PHEH2012US011446

PATIENT
  Age: 83 Year
  Sex: Female
  Weight: 68 kg

DRUGS (15)
  1. RECLAST (ZOLEDRONATE) SOLUTION FOR INJECTION [Suspect]
     Indication: OSTEOPOROSIS
     Route: 042
     Dates: start: 20050630, end: 20110208
  2. RECLAST (ZOLEDRONATE) SOLUTION FOR INJECTION [Suspect]
     Indication: PROPHYLAXIS
     Route: 042
     Dates: start: 20050630, end: 20110208
  3. SYNTHROID (LEVOTHYROXINE SODIUM) [Concomitant]
  4. ATENOLOL (ATENOLOL) [Concomitant]
  5. VITAMIN D (ERGOCALCIFEROL) [Concomitant]
  6. CALCIUM CARBONATE (CALCIUM CARBONATE) [Concomitant]
  7. PRAVASTATIN (PRAVASTATIN) [Concomitant]
  8. LISINOPRIL (LISINOPRIL) [Concomitant]
  9. HYDROCHLOROTHIAZIDE (HYDROCHLOROTHIAZIDE) [Concomitant]
  10. NABUMETONE (RELAFEN) [Concomitant]
  11. COLACE [Concomitant]
  12. PRILOSEC [Concomitant]
  13. CELEXA (CITALOPRAM HYDROBROMIDE) [Concomitant]
  14. ASPIRIN (ACETYLSALICYLIC ACID) [Concomitant]
  15. DITRUL LA [Concomitant]

REACTIONS (2)
  - Atypical femur fracture [None]
  - Pain in extremity [None]
